FAERS Safety Report 20144524 (Version 1)
Quarter: 2021Q4

REPORT INFORMATION
  Report Type: Spontaneous
  Country: US (occurrence: None)
  Receive Date: 20211202
  Receipt Date: 20211202
  Transmission Date: 20220303
  Serious: Yes (Hospitalization)
  Sender: FDA-Public Use
  Company Number: None

PATIENT
  Age: 84 Year
  Sex: Male
  Weight: 97 kg

DRUGS (1)
  1. APIXABAN [Suspect]
     Active Substance: APIXABAN
     Indication: Atrial fibrillation
     Dosage: FREQUENCY : TWICE A DAY;?
     Route: 048
     Dates: start: 20190912

REACTIONS (6)
  - Visual field defect [None]
  - Therapy interrupted [None]
  - Blood pressure increased [None]
  - Cerebral infarction [None]
  - Carotid artery stenosis [None]
  - Transient ischaemic attack [None]

NARRATIVE: CASE EVENT DATE: 20210927
